FAERS Safety Report 10600925 (Version 2)
Quarter: 2014Q4

REPORT INFORMATION
  Report Type: Spontaneous
  Country: DE (occurrence: DE)
  Receive Date: 20141124
  Receipt Date: 20141126
  Transmission Date: 20150529
  Serious: Yes (Other)
  Sender: FDA-Public Use
  Company Number: DE-BAYER-2014-169597

PATIENT
  Age: 52 Year
  Sex: Female
  Weight: 70 kg

DRUGS (1)
  1. INTERFERON BETA - 1B [Suspect]
     Active Substance: INTERFERON BETA-1B
     Indication: RELAPSING-REMITTING MULTIPLE SCLEROSIS
     Dosage: UNK
     Dates: start: 2011

REACTIONS (2)
  - Neutralising antibodies positive [None]
  - Multiple sclerosis relapse [None]

NARRATIVE: CASE EVENT DATE: 2011
